FAERS Safety Report 10142163 (Version 2)
Quarter: 2015Q3

REPORT INFORMATION
  Report Type: Report from Study
  Country: US (occurrence: US)
  Receive Date: 20140429
  Receipt Date: 20150728
  Transmission Date: 20151125
  Serious: Yes (Other)
  Sender: FDA-Public Use
  Company Number: US-ASTELLAS-2014US004569

PATIENT

DRUGS (3)
  1. DOVITINIB LACTATE [Suspect]
     Active Substance: DOVITINIB LACTATE
     Dosage: 200 MG, 5 DAYS ON 2 DAYS OFF
     Route: 065
  2. DOVITINIB LACTATE [Suspect]
     Active Substance: DOVITINIB LACTATE
     Indication: NON-SMALL CELL LUNG CANCER METASTATIC
     Dosage: 300 MG, 5 DAYS ON 2 DAYS OFF
     Route: 048
  3. ERLOTINIB [Suspect]
     Active Substance: ERLOTINIB
     Indication: NON-SMALL CELL LUNG CANCER METASTATIC
     Route: 048

REACTIONS (1)
  - Pulmonary embolism [Unknown]
